FAERS Safety Report 6652752-8 (Version None)
Quarter: 2010Q1

REPORT INFORMATION
  Report Type: 
  Country: None (occurrence: None)
  Receive Date: 20100326
  Receipt Date: 20100311
  Transmission Date: 20100710
  Serious: Yes (Hospitalization)
  Sender: FDA-Public Use
  Company Number: US-ELI_LILLY_AND_COMPANY-US201003004833

PATIENT
  Sex: Female

DRUGS (10)
  1. FORTEO [Suspect]
     Indication: OSTEOPOROSIS
     Dosage: 20 UG, DAILY (1/D)
     Dates: start: 20090901
  2. COREG [Concomitant]
     Dosage: 3.125 MG, 2/D
     Dates: start: 20090101
  3. LASIX [Concomitant]
     Dosage: 40 ML, DAILY (1/D)
     Dates: start: 20090101
  4. LEVOXYL [Concomitant]
     Indication: THYROID DISORDER
     Dosage: 0.5 ML, DAILY (1/D)
  5. CYTOMEL [Concomitant]
     Dosage: 5 ML, 2/D
     Dates: start: 20080101
  6. NEXIUM [Concomitant]
     Dosage: 40 ML, DAILY (1/D)
  7. COUMADIN [Concomitant]
     Dosage: 2 ML, DAILY (1/D)
     Dates: start: 20090101
  8. MUCOMYST [Concomitant]
     Dosage: 2 ML, ONE OR TWO AS NEEDED
     Dates: start: 20090101
  9. ALBUTEROL [Concomitant]
     Dosage: 1 VIAL, EVERY 6 HOURS AS NEEDED
  10. ULTRAM [Concomitant]
     Indication: ARTHRITIS
     Dosage: 50 ML, EVERY 8 HOURS AS NEEDED
     Dates: start: 20080101

REACTIONS (2)
  - BRONCHITIS [None]
  - PNEUMONIA ASPIRATION [None]
